FAERS Safety Report 12060703 (Version 1)
Quarter: 2016Q1

REPORT INFORMATION
  Report Type: Spontaneous
  Country: FR (occurrence: FR)
  Receive Date: 20160210
  Receipt Date: 20160210
  Transmission Date: 20160526
  Serious: Yes (Other)
  Sender: FDA-Public Use
  Company Number: FR-PFIZER INC-2016072758

PATIENT
  Age: 93 Year
  Sex: Male

DRUGS (8)
  1. FORLAX [Concomitant]
     Active Substance: POLYETHYLENE GLYCOL 4000
     Dosage: 20 G (2DF OF 10 G), 1X/DAY
     Route: 048
     Dates: end: 20151016
  2. KARDEGIC [Concomitant]
     Active Substance: ASPIRIN LYSINE
     Dosage: UNK
  3. VENLAFAXINE HCL [Suspect]
     Active Substance: VENLAFAXINE HYDROCHLORIDE
     Indication: DEPRESSION
     Dosage: UNK
     Dates: end: 20151013
  4. LOSARTAN ARROW [Concomitant]
     Active Substance: LOSARTAN
     Dosage: 50 MG, 1X/DAY
     Route: 048
     Dates: end: 20151016
  5. JOSIR LP [Concomitant]
     Active Substance: TAMSULOSIN
     Dosage: 0.4 MG, 1X/DAY
     Route: 048
     Dates: end: 20151016
  6. PARACETAMOL [Concomitant]
     Active Substance: ACETAMINOPHEN
     Dosage: UNK
  7. LERCANIDIPINE MYLAN [Concomitant]
     Active Substance: LERCANIDIPINE
     Dosage: 20 MG (1DF OF 20 MG), 1X/DAY
     Route: 048
     Dates: end: 20151016
  8. LANSOYL [Concomitant]
     Active Substance: MINERAL OIL
     Dosage: 1 DF, ONCE DAILY, AS NEEDED
     Route: 048
     Dates: end: 20151016

REACTIONS (1)
  - Suicide attempt [Unknown]

NARRATIVE: CASE EVENT DATE: 20151013
